FAERS Safety Report 17490734 (Version 1)
Quarter: 2020Q1

REPORT INFORMATION
  Report Type: Other
  Country: IT (occurrence: IT)
  Receive Date: 20200304
  Receipt Date: 20200304
  Transmission Date: 20200409
  Serious: Yes (Other)
  Sender: FDA-Public Use
  Company Number: IT-LAURUS LABS LIMITED-202000070

PATIENT
  Age: 34 Year
  Sex: Female

DRUGS (1)
  1. HYDROXYCHLOROQUINE [Suspect]
     Active Substance: HYDROXYCHLOROQUINE
     Indication: UNDIFFERENTIATED CONNECTIVE TISSUE DISEASE
     Route: 065

REACTIONS (3)
  - Capillary leak syndrome [Recovered/Resolved]
  - Acute generalised exanthematous pustulosis [Unknown]
  - Off label use [Unknown]
